FAERS Safety Report 25132102 (Version 1)
Quarter: 2025Q1

REPORT INFORMATION
  Report Type: Spontaneous
  Country: US (occurrence: US)
  Receive Date: 20250328
  Receipt Date: 20250328
  Transmission Date: 20250408
  Serious: Yes (Other)
  Sender: SYNDAX
  Company Number: US-SYNDAX PHARMACEUTICALS, INC.-2025US000289

PATIENT
  Sex: Male

DRUGS (1)
  1. REVUFORJ [Suspect]
     Active Substance: REVUMENIB CITRATE
     Indication: Product used for unknown indication

REACTIONS (3)
  - Impaired gastric emptying [Unknown]
  - Enteral nutrition [Not Recovered/Not Resolved]
  - Nutritional supplementation [Not Recovered/Not Resolved]
